FAERS Safety Report 7304573-0 (Version None)
Quarter: 2011Q1

REPORT INFORMATION
  Report Type: 
  Country: None (occurrence: None)
  Receive Date: 20110222
  Receipt Date: 20101216
  Transmission Date: 20110831
  Serious: Yes (Hospitalization)
  Sender: FDA-Public Use
  Company Number: PHHY2010HU90587

PATIENT
  Age: 66 Year
  Sex: Female

DRUGS (3)
  1. ACLASTA [Suspect]
     Indication: OSTEOPOROSIS
     Dosage: 5 MG
     Route: 042
     Dates: start: 20090101
  2. ACLASTA [Suspect]
     Dosage: UNK
     Dates: start: 20101128
  3. TELMISARTAN [Concomitant]
     Dosage: 80 MG

REACTIONS (4)
  - DYSPNOEA [None]
  - CHEST DISCOMFORT [None]
  - CHOKING [None]
  - MUSCLE SPASMS [None]
